FAERS Safety Report 4267523-X (Version None)
Quarter: 2004Q1

REPORT INFORMATION
  Report Type: 
  Country: None (occurrence: None)
  Receive Date: 20040109
  Receipt Date: 20030730
  Transmission Date: 20041129
  Serious: No
  Sender: FDA-Public Use
  Company Number: US-GLAXOSMITHKLINE-A0419180A

PATIENT
  Age: 79 Year
  Sex: Female

DRUGS (4)
  1. WELLBUTRIN [Suspect]
     Dosage: 75MG PER DAY
     Route: 048
  2. WELLBUTRIN [Suspect]
     Route: 048
  3. ATENOLOL [Concomitant]
  4. XANAX [Concomitant]

REACTIONS (4)
  - ABDOMINAL DISTENSION [None]
  - DIZZINESS [None]
  - NAUSEA [None]
  - VISION BLURRED [None]
